FAERS Safety Report 6160814-7 (Version None)
Quarter: 2009Q2

REPORT INFORMATION
  Report Type: 
  Country: None (occurrence: None)
  Receive Date: 20090420
  Receipt Date: 20090408
  Transmission Date: 20091009
  Serious: Yes (Death)
  Sender: FDA-Public Use
  Company Number: KR-GENENTECH-269780

PATIENT
  Sex: Male
  Weight: 52 kg

DRUGS (3)
  1. TRASTUZUMAB [Suspect]
     Indication: GASTRIC CANCER
     Dosage: 6 MG/KG, Q3W
     Route: 042
     Dates: start: 20080819, end: 20081002
  2. CAPECITABINE [Suspect]
     Indication: GASTRIC CANCER
     Dosage: 1000 MG/M2, BID/D1-14/Q3W
     Route: 048
     Dates: start: 20080819, end: 20081002
  3. CISPLATIN [Suspect]
     Indication: GASTRIC CANCER
     Dosage: 80 MG/M2, Q3W
     Route: 042
     Dates: start: 20080819, end: 20081002

REACTIONS (1)
  - DEATH [None]
